FAERS Safety Report 5507827-3 (Version None)
Quarter: 2007Q4

REPORT INFORMATION
  Report Type: 
  Country: None (occurrence: None)
  Receive Date: 20071031
  Receipt Date: 20070801
  Transmission Date: 20080405
  Serious: No
  Sender: FDA-Public Use
  Company Number: PHEH2007US10761

PATIENT
  Age: 12 Year
  Sex: Male

DRUGS (1)
  1. TYZEKA [Suspect]

REACTIONS (1)
  - WRONG DRUG ADMINISTERED [None]
